FAERS Safety Report 23946603 (Version 1)
Quarter: 2024Q2

REPORT INFORMATION
  Report Type: Spontaneous
  Country: US (occurrence: None)
  Receive Date: 20240606
  Receipt Date: 20240606
  Transmission Date: 20240716
  Serious: Yes (Other)
  Sender: FDA-Public Use
  Company Number: None

PATIENT
  Age: 72 Year
  Sex: Female

DRUGS (4)
  1. VARITHENA [Suspect]
     Active Substance: POLIDOCANOL
     Dates: start: 20240126
  2. UNSPECIFIED INGREDIENT [Concomitant]
     Active Substance: UNSPECIFIED INGREDIENT
  3. UNSPECIFIED INGREDIENT [Concomitant]
     Active Substance: UNSPECIFIED INGREDIENT
  4. COMPRESSION STOCKINGS [Concomitant]

REACTIONS (4)
  - Endovenous ablation [None]
  - Pain in extremity [None]
  - Peripheral swelling [None]
  - Struck by lightning [None]

NARRATIVE: CASE EVENT DATE: 20240126
